FAERS Safety Report 7559441-6 (Version None)
Quarter: 2011Q2

REPORT INFORMATION
  Report Type: 
  Country: None (occurrence: None)
  Receive Date: 20110621
  Receipt Date: 20110616
  Transmission Date: 20111010
  Serious: Yes (Hospitalization, Other)
  Sender: FDA-Public Use
  Company Number: FR-BRISTOL-MYERS SQUIBB COMPANY-15264815

PATIENT
  Age: 35 Year
  Sex: Male

DRUGS (4)
  1. NORVIR [Suspect]
     Indication: ANTIRETROVIRAL THERAPY
     Dates: start: 20060509
  2. TRUVADA [Suspect]
     Indication: ANTIRETROVIRAL THERAPY
     Dates: start: 20060509
  3. PREZISTA [Suspect]
     Indication: ANTIRETROVIRAL THERAPY
  4. REYATAZ [Suspect]
     Indication: HIV INFECTION
     Route: 048
     Dates: start: 20060808, end: 20090414

REACTIONS (3)
  - CALCULUS URINARY [None]
  - CYTOLYTIC HEPATITIS [None]
  - CHOLELITHIASIS [None]
